FAERS Safety Report 6259328-5 (Version None)
Quarter: 2009Q3

REPORT INFORMATION
  Report Type: 
  Country: None (occurrence: None)
  Receive Date: 20090702
  Receipt Date: 20090619
  Transmission Date: 20100115
  Serious: Yes (Death)
  Sender: FDA-Public Use
  Company Number: 2008AL012001

PATIENT
  Age: 71 Year
  Sex: Male

DRUGS (29)
  1. DIGOXIN [Suspect]
     Dosage: 0.125MG, DAILY, PO
     Route: 048
     Dates: start: 20080401
  2. XANAX [Concomitant]
  3. NORCO [Concomitant]
  4. ASPIRIN [Concomitant]
  5. PLAVIX [Concomitant]
  6. DECADRON [Concomitant]
  7. CARDIZEM [Concomitant]
  8. LASIX [Concomitant]
  9. LEVAQUIN [Concomitant]
  10. OXYCONTIN [Concomitant]
  11. PROTONIX [Concomitant]
  12. EFFEXOR [Concomitant]
  13. COZAAR [Concomitant]
  14. LOPRESSOR [Concomitant]
  15. LIPITOR [Concomitant]
  16. PROPOXYPHENE NAPSYLATE [Concomitant]
  17. ALPRAZOLAM [Concomitant]
  18. HYZAAR [Concomitant]
  19. MIRALAX [Concomitant]
  20. DOK [Concomitant]
  21. ISOSORB [Concomitant]
  22. SULFADIAZINE AND TRIMETHOPRIM [Concomitant]
  23. HYOSCYAMINE [Concomitant]
  24. TOPROL-XL [Concomitant]
  25. HYDROCODONE BITARTRATE [Concomitant]
  26. CEPHALEXIN [Concomitant]
  27. VISICOL [Concomitant]
  28. OXYBUTYNIN CHLORIDE [Concomitant]
  29. NITROSTAT [Concomitant]

REACTIONS (4)
  - BLOOD PRESSURE ABNORMAL [None]
  - CORONARY ARTERY DISEASE [None]
  - ECONOMIC PROBLEM [None]
  - INJURY [None]
